FAERS Safety Report 5056085-5 (Version None)
Quarter: 2006Q3

REPORT INFORMATION
  Report Type: 
  Country: None (occurrence: None)
  Receive Date: 20060717
  Receipt Date: 20060709
  Transmission Date: 20061208
  Serious: Yes (Other)
  Sender: FDA-Public Use
  Company Number: 2006084426

PATIENT
  Age: 62 Year
  Sex: Female

DRUGS (4)
  1. ROGAINE [Suspect]
     Dosage: 1 ML TWICE DAILY, TOPICAL
     Route: 061
     Dates: start: 20060621, end: 20060703
  2. ISOSORBIDE MONONITRATE [Concomitant]
  3. METFORMIN [Concomitant]
  4. FELODIPINE [Concomitant]

REACTIONS (10)
  - DYSPNOEA [None]
  - EYE SWELLING [None]
  - PRURITUS [None]
  - RASH [None]
  - SKIN BURNING SENSATION [None]
  - SKIN EXFOLIATION [None]
  - SKIN IRRITATION [None]
  - SWELLING FACE [None]
  - SWOLLEN TONGUE [None]
  - URTICARIA GENERALISED [None]
